FAERS Safety Report 21387276 (Version 1)
Quarter: 2022Q3

REPORT INFORMATION
  Report Type: Spontaneous
  Country: DE (occurrence: DE)
  Receive Date: 20220928
  Receipt Date: 20220928
  Transmission Date: 20221027
  Serious: Yes (Hospitalization, Other)
  Sender: FDA-Public Use
  Company Number: DE-ANIPHARMA-2022-DE-000149

PATIENT
  Age: 83 Year
  Sex: Female

DRUGS (10)
  1. CANDESARTAN CILEXETIL [Suspect]
     Active Substance: CANDESARTAN CILEXETIL
     Indication: Product used for unknown indication
     Dosage: 16 MG UNK
     Route: 048
  2. METAMIZOL [Concomitant]
     Active Substance: METAMIZOLE SODIUM
     Dosage: 500 MG,1-1-1-1
     Route: 048
  3. AMLODIPINE BESYLATE [Suspect]
     Active Substance: AMLODIPINE BESYLATE
     Dosage: 5 MG UNK
     Route: 048
  4. BISOPROLOL [Suspect]
     Active Substance: BISOPROLOL
     Dosage: 5 MG UNK
     Route: 048
  5. BRIVUDINE [Suspect]
     Active Substance: BRIVUDINE
     Dosage: 125 MG UNK
     Route: 048
  6. TORSEMIDE [Suspect]
     Active Substance: TORSEMIDE
     Dosage: 5 MG UNK
     Route: 048
  7. MIRTAZAPINE [Suspect]
     Active Substance: MIRTAZAPINE
     Dosage: 30 MG UNK
     Route: 048
  8. PREGABALIN [Suspect]
     Active Substance: PREGABALIN
     Dosage: 50 MG UNK
     Route: 048
  9. EDOXABAN [Concomitant]
     Active Substance: EDOXABAN
     Dosage: 60 MG, 1-0-0-0
     Route: 048
  10. ATORVASTATIN [Concomitant]
     Active Substance: ATORVASTATIN
     Dosage: 40 MG, 0-0-1-0
     Route: 048

REACTIONS (14)
  - Hyponatraemia [Recovering/Resolving]
  - Acute kidney injury [Recovering/Resolving]
  - Therapeutic drug monitoring analysis not performed [Unknown]
  - Product prescribing error [Unknown]
  - Labelled drug-drug interaction medication error [Unknown]
  - Product monitoring error [Unknown]
  - Systemic infection [Unknown]
  - Hypokalaemia [Recovering/Resolving]
  - Tremor [Unknown]
  - Hypertension [Unknown]
  - Herpes zoster [Unknown]
  - Tachycardia [Unknown]
  - Dyspnoea [Recovering/Resolving]
  - Oedema peripheral [Recovering/Resolving]

NARRATIVE: CASE EVENT DATE: 20200206
